FAERS Safety Report 7161628-1 (Version None)
Quarter: 2010Q4

REPORT INFORMATION
  Report Type: 
  Country: None (occurrence: None)
  Receive Date: 20101215
  Receipt Date: 20101203
  Transmission Date: 20110411
  Serious: Yes (Hospitalization, Other)
  Sender: FDA-Public Use
  Company Number: PHHY2010JP80184

PATIENT
  Age: 53 Year
  Sex: Male

DRUGS (1)
  1. TEGRETOL [Suspect]
     Route: 048

REACTIONS (3)
  - HYPOGAMMAGLOBULINAEMIA [None]
  - ORGANISING PNEUMONIA [None]
  - RESPIRATORY DISTRESS [None]
